FAERS Safety Report 4608461-X (Version None)
Quarter: 2005Q1

REPORT INFORMATION
  Report Type: 
  Country: None (occurrence: None)
  Receive Date: 20050311
  Receipt Date: 20050311
  Transmission Date: 20050727
  Serious: Yes (Hospitalization)
  Sender: FDA-Public Use
  Company Number: None

PATIENT
  Age: 72 Year
  Sex: Male
  Weight: 127.6 kg

DRUGS (18)
  1. METHYLPHENIDATE [Suspect]
     Indication: DEPRESSION
     Dosage: 5 MG PO BID
     Route: 048
     Dates: start: 20050128, end: 20050217
  2. ASPIRIN [Concomitant]
  3. ATENOLOL [Concomitant]
  4. METOLAZONE [Concomitant]
  5. SIMVASTATIN [Concomitant]
  6. LORATADINE [Concomitant]
  7. CALCIUM CARBONATE [Concomitant]
  8. DOCUSATE NA [Concomitant]
  9. FUROSEMIDE [Concomitant]
  10. ISOSORBIDE MONONITRATE [Concomitant]
  11. NITROGLYCERIN [Concomitant]
  12. POTASSIUM CHLORIDE [Concomitant]
  13. FLUNISOLIDE [Concomitant]
  14. TRAZODONE HCL [Concomitant]
  15. AMIODARONE HCL (GENEVA) [Concomitant]
  16. SERTRALINE HCL [Concomitant]
  17. FERROUS GLUCONATE [Concomitant]
  18. CLOTRIMAZOLE [Concomitant]

REACTIONS (2)
  - DELIRIUM [None]
  - HALLUCINATION [None]
